FAERS Safety Report 7072096-2 (Version None)
Quarter: 2010Q4

REPORT INFORMATION
  Report Type: 
  Country: None (occurrence: None)
  Receive Date: 20101029
  Receipt Date: 20101026
  Transmission Date: 20110411
  Serious: Yes (Death, Other)
  Sender: FDA-Public Use
  Company Number: GB-PFIZER INC-2010129969

PATIENT
  Age: 35 Year
  Sex: Female

DRUGS (1)
  1. FLUCONAZOLE [Suspect]
     Dosage: 100 MG, 1X/DAY

REACTIONS (3)
  - DRUG RESISTANCE [None]
  - PYREXIA [None]
  - SEPTIC SHOCK [None]
